FAERS Safety Report 15195567 (Version 1)
Quarter: 2018Q3

REPORT INFORMATION
  Report Type: Spontaneous
  Country: NO (occurrence: NO)
  Receive Date: 20180725
  Receipt Date: 20180725
  Transmission Date: 20181010
  Serious: Yes (Other)
  Sender: FDA-Public Use
  Company Number: NO-PFIZER INC-2018294630

PATIENT
  Age: 45 Year
  Sex: Male
  Weight: 115 kg

DRUGS (3)
  1. LYRICA [Suspect]
     Active Substance: PREGABALIN
     Indication: NEUROPATHY PERIPHERAL
     Dosage: 4 DF, DAILY (1 DF IN THE MORNING, 1 DF AT NOON, 2 DF IN THE EVENING)
     Dates: start: 20180605
  2. PARACET /00020001/ [Concomitant]
     Active Substance: ACETAMINOPHEN
     Dosage: UNK
  3. SERTRALINE [Concomitant]
     Active Substance: SERTRALINE HYDROCHLORIDE
     Dosage: UNK

REACTIONS (2)
  - Ecchymosis [Recovered/Resolved]
  - Haemorrhage subcutaneous [Recovered/Resolved]
